FAERS Safety Report 9417497 (Version 1)
Quarter: 2013Q3

REPORT INFORMATION
  Report Type: Spontaneous
  Country: BR (occurrence: None)
  Receive Date: 20130719
  Receipt Date: 20130719
  Transmission Date: 20140515
  Serious: Yes (Other)
  Sender: FDA-Public Use
  Company Number: SYM-2013-05575

PATIENT
  Age: 73 Year
  Sex: Female
  Weight: 64 kg

DRUGS (2)
  1. VISUDYNE [Suspect]
     Indication: PRODUCT USED FOR UNKNOWN INDICATION
     Dates: start: 20130417
  2. LUCENTIS (RANIBIZUMAB) (RANIBIZUMAB) [Concomitant]

REACTIONS (6)
  - Abdominal pain [None]
  - Neck pain [None]
  - Muscle spasms [None]
  - Expired drug administered [None]
  - Blindness unilateral [None]
  - Mental disorder [None]
